FAERS Safety Report 6269158-6 (Version None)
Quarter: 2009Q3

REPORT INFORMATION
  Report Type: 
  Country: None (occurrence: None)
  Receive Date: 20090715
  Receipt Date: 20090714
  Transmission Date: 20100115
  Serious: Yes (Hospitalization, Other)
  Sender: FDA-Public Use
  Company Number: ES-ROXANE LABORATORIES, INC.-2009-RO-00685RO

PATIENT
  Age: 60 Year
  Sex: Female

DRUGS (3)
  1. METHOTREXATE [Suspect]
     Indication: RHEUMATOID ARTHRITIS
  2. ADALIMUMAB [Suspect]
     Indication: RHEUMATOID ARTHRITIS
  3. AMPHOTERICIN B [Concomitant]
     Indication: VISCERAL LEISHMANIASIS

REACTIONS (12)
  - CHOLECYSTITIS [None]
  - CYTOLYTIC HEPATITIS [None]
  - HAEMOGLOBIN DECREASED [None]
  - HEPATIC FAILURE [None]
  - HEPATOMEGALY [None]
  - OPPORTUNISTIC INFECTION [None]
  - PLATELET COUNT DECREASED [None]
  - RENAL FAILURE [None]
  - SEPSIS [None]
  - SPLENOMEGALY [None]
  - VISCERAL LEISHMANIASIS [None]
  - WHITE BLOOD CELL COUNT DECREASED [None]
